FAERS Safety Report 6699935-9 (Version None)
Quarter: 2010Q2

REPORT INFORMATION
  Report Type: 
  Country: None (occurrence: None)
  Receive Date: 20100428
  Receipt Date: 20100420
  Transmission Date: 20101027
  Serious: Yes (Other)
  Sender: FDA-Public Use
  Company Number: FR-SP-E2010-01087

PATIENT
  Sex: Female
  Weight: 42 kg

DRUGS (1)
  1. TUBERSOL [Suspect]
     Indication: TUBERCULIN TEST
     Route: 058
     Dates: start: 20100110, end: 20100110

REACTIONS (6)
  - ARTHRALGIA [None]
  - INCORRECT ROUTE OF DRUG ADMINISTRATION [None]
  - PSORIASIS [None]
  - RASH [None]
  - SACROILIITIS [None]
  - SKIN LESION [None]
